FAERS Safety Report 5274119-X (Version None)
Quarter: 2007Q1

REPORT INFORMATION
  Report Type: 
  Country: None (occurrence: None)
  Receive Date: 20070323
  Receipt Date: 20070314
  Transmission Date: 20070707
  Serious: Yes (Life-Threatening)
  Sender: FDA-Public Use
  Company Number: GB-PURDUE-GBR_2006_0002602

PATIENT
  Age: 72 Year
  Sex: Male

DRUGS (21)
  1. MIXTARD HUMAN 70/30 [Concomitant]
     Indication: DIABETES MELLITUS
     Dosage: UNK, UNK
     Route: 065
  2. FRUSEMIDE [Concomitant]
     Indication: CARDIAC DISORDER
     Dosage: 40 MG, AM
     Route: 048
     Dates: start: 20061010
  3. LANSOPRAZOLE [Concomitant]
     Indication: DYSPEPSIA
     Dosage: 30 MG, AM
     Route: 048
     Dates: start: 20061010
  4. ACETYLSALICYLIC ACID SRT [Concomitant]
     Indication: CARDIAC DISORDER
     Dosage: 300 MG, AM
     Route: 048
     Dates: start: 20061010
  5. FERROUS SULFATE TAB [Concomitant]
     Indication: ANAEMIA
     Dosage: 200 MG, TID
     Route: 048
     Dates: start: 20061010
  6. DIGOXIN [Concomitant]
     Indication: CARDIAC DISORDER
     Dosage: 125 MCG, AM
     Route: 048
     Dates: start: 20061010
  7. LEVOTHYROXINE SODIUM [Concomitant]
     Indication: HYPOTHYROIDISM
     Dosage: 175 MCG, AM
     Route: 048
     Dates: start: 20061010
  8. MORPHINE SULFATE [Concomitant]
     Indication: PAIN
     Dosage: 60 MG, AM
     Route: 048
     Dates: start: 20061010, end: 20061016
  9. MORPHINE SULFATE [Concomitant]
     Dosage: 30 MG, BID
     Route: 048
     Dates: start: 20061016, end: 20061018
  10. MOVICOL [Concomitant]
     Indication: CONSTIPATION PROPHYLAXIS
     Dosage: 1 SACHET, QID
     Route: 048
     Dates: start: 20061010
  11. HALOPERIDOL [Concomitant]
     Indication: AGITATION
     Dosage: 1.5 MG, QID
     Route: 048
  12. AUGMENTIN '125' [Concomitant]
     Indication: INFECTION
     Dosage: 625 MG, TID
     Route: 065
     Dates: start: 20061013, end: 20061019
  13. PARAFFIN, LIQUID [Concomitant]
     Indication: DRUG USE FOR UNKNOWN INDICATION
     Dosage: UNK, BID
     Route: 061
     Dates: start: 20061019
  14. ORAMORPH SR [Concomitant]
     Indication: PAIN
     Dosage: 5 MG, QID
     Route: 048
     Dates: start: 20061019, end: 20061020
  15. SEVREDOL TABLETS 10 MG [Concomitant]
     Indication: PAIN
     Dosage: 10 MG, Q4H PRN
     Route: 048
     Dates: start: 20061010, end: 20061019
  16. TEMAZEPAM [Concomitant]
     Indication: INSOMNIA
     Dosage: 10 MG, PM
     Route: 048
     Dates: end: 20061020
  17. RAMIPRIL [Concomitant]
     Indication: CARDIAC DISORDER
     Dosage: 5 MG, BID
     Route: 048
     Dates: start: 20061010
  18. ATENOLOL [Concomitant]
     Indication: CARDIAC DISORDER
     Dosage: 25 MG, BID
     Route: 048
     Dates: start: 20061010
  19. METRONIDAZOLE [Concomitant]
     Indication: INFECTION
     Dosage: 500 MG, TID
     Route: 042
     Dates: start: 20061010, end: 20061013
  20. METRONIDAZOLE [Concomitant]
     Dosage: 400 MG, TID
     Route: 048
     Dates: start: 20061013, end: 20061019
  21. OXYCONTIN TABLETS 10 MG [Suspect]
     Indication: PAIN
     Dosage: 10 MG, DAILY
     Route: 048
     Dates: start: 20061018, end: 20061019

REACTIONS (1)
  - PURPURA [None]
